FAERS Safety Report 7749457-9 (Version None)
Quarter: 2011Q3

REPORT INFORMATION
  Report Type: 
  Country: None (occurrence: None)
  Receive Date: 20110829
  Receipt Date: 20110829
  Transmission Date: 20111222
  Serious: Yes (Hospitalization)
  Sender: FDA-Public Use
  Company Number: 2011SP021532

PATIENT
  Age: 54 Year
  Sex: Male

DRUGS (17)
  1. AMOXAPINE [Suspect]
     Indication: DEPRESSION
     Dosage: 25;50 MG, QD, PO
     Route: 048
     Dates: end: 20101006
  2. AMOXAPINE [Suspect]
     Indication: DEPRESSION
     Dosage: 25;50 MG, QD, PO
     Route: 048
     Dates: start: 20101007, end: 20101027
  3. ETIZOLAM [Concomitant]
  4. ESTAZOLAM [Concomitant]
  5. NIFEDIPINE [Concomitant]
  6. DOXAZOSIN MESILATE [Concomitant]
  7. CYMBALTA [Suspect]
     Indication: DEPRESSION
     Dosage: 20;40;60 MG, QD, PO
     Route: 048
     Dates: end: 20100820
  8. CYMBALTA [Suspect]
     Indication: DEPRESSION
     Dosage: 20;40;60 MG, QD, PO
     Route: 048
     Dates: start: 20100821, end: 20100930
  9. CYMBALTA [Suspect]
     Indication: DEPRESSION
     Dosage: 20;40;60 MG, QD, PO
     Route: 048
     Dates: start: 20100803
  10. LEVOFLOXACIN HYDRATE [Concomitant]
  11. METOPROLOL TARTRATE [Concomitant]
  12. TEMISARTAN [Concomitant]
  13. LEVOTYHYROXINE SODIUM HYDRATE [Concomitant]
  14. MIRTAZAPINE [Suspect]
     Indication: DEPRESSION
     Dosage: 15 MG, QD, PO
     Route: 048
     Dates: start: 20100101, end: 20101027
  15. ETHYL ICOSAPENTATE [Concomitant]
  16. OMEPRAZOLE [Concomitant]
  17. RAMOSETRON HYDROCHLORIDE [Concomitant]

REACTIONS (4)
  - HAEMODIALYSIS [None]
  - URINARY RETENTION [None]
  - PYREXIA [None]
  - RENAL IMPAIRMENT [None]
